FAERS Safety Report 11275072 (Version 1)
Quarter: 2015Q3

REPORT INFORMATION
  Report Type: Spontaneous
  Country: US (occurrence: None)
  Receive Date: 20150714
  Receipt Date: 20150714
  Transmission Date: 20151125
  Serious: No
  Sender: FDA-Public Use
  Company Number: None

PATIENT
  Sex: Male

DRUGS (4)
  1. BUPROPION SR 100 MG [Suspect]
     Active Substance: BUPROPION
     Indication: DEPRESSION
     Route: 048
  2. WELLBUTRIN SR [Concomitant]
     Active Substance: BUPROPION HYDROCHLORIDE
  3. ALPRAZOLAM. [Concomitant]
     Active Substance: ALPRAZOLAM
  4. ZITHOBID [Concomitant]

REACTIONS (3)
  - Feeling jittery [None]
  - Product substitution issue [None]
  - Restlessness [None]
